FAERS Safety Report 12630159 (Version 1)
Quarter: 2016Q3

REPORT INFORMATION
  Report Type: Spontaneous
  Country: US (occurrence: US)
  Receive Date: 20160808
  Receipt Date: 20160808
  Transmission Date: 20161109
  Serious: Yes (Hospitalization, Other)
  Sender: FDA-Public Use
  Company Number: US-SMITH AND NEPHEW, INC-2016SMT00652

PATIENT
  Age: 78 Year
  Sex: Male
  Weight: 74.83 kg

DRUGS (2)
  1. SILVER NITRATE. [Concomitant]
     Active Substance: SILVER NITRATE
  2. REGRANEX [Suspect]
     Active Substance: BECAPLERMIN
     Dosage: UNK
     Route: 061
     Dates: start: 201606

REACTIONS (4)
  - Respiratory distress [Unknown]
  - Respiratory failure [Unknown]
  - Off label use [Not Recovered/Not Resolved]
  - Respiratory arrest [Unknown]

NARRATIVE: CASE EVENT DATE: 201606
